FAERS Safety Report 6857659-9 (Version None)
Quarter: 2010Q3

REPORT INFORMATION
  Report Type: 
  Country: None (occurrence: None)
  Receive Date: 20100719
  Receipt Date: 20080128
  Transmission Date: 20110219
  Serious: No
  Sender: FDA-Public Use
  Company Number: US-PFIZER INC-2008010526

PATIENT
  Sex: Female
  Weight: 67.1 kg

DRUGS (5)
  1. CHANTIX [Suspect]
     Indication: SMOKING CESSATION THERAPY
     Dates: start: 20080119
  2. TUMS [Suspect]
     Indication: ERUCTATION
     Dates: start: 20080127
  3. TUMS [Suspect]
     Indication: NAUSEA
  4. LIPITOR [Concomitant]
  5. ACTONEL [Concomitant]

REACTIONS (2)
  - ERUCTATION [None]
  - NAUSEA [None]
